FAERS Safety Report 15632801 (Version 2)
Quarter: 2019Q3

REPORT INFORMATION
  Report Type: Report from Study
  Country: US (occurrence: US)
  Receive Date: 20181119
  Receipt Date: 20190910
  Transmission Date: 20191004
  Serious: Yes (Death, Other)
  Sender: FDA-Public Use
  Company Number: US-REGENERON PHARMACEUTICALS, INC.-2018-45000

PATIENT

DRUGS (22)
  1. EYLEA [Suspect]
     Active Substance: AFLIBERCEPT
     Dosage: UNK, TOTAL OF 22 DOSES
     Dates: start: 20130321, end: 20130321
  2. EYLEA [Suspect]
     Active Substance: AFLIBERCEPT
     Dosage: UNK, TOTAL OF 22 DOSES
     Dates: start: 20130523, end: 20130523
  3. EYLEA [Suspect]
     Active Substance: AFLIBERCEPT
     Dosage: UNK, TOTAL OF 22 DOSES
     Dates: start: 20131031, end: 20131031
  4. EYLEA [Suspect]
     Active Substance: AFLIBERCEPT
     Dosage: UNK, TOTAL OF 22 DOSES
     Dates: start: 20140710, end: 20140710
  5. EYLEA [Suspect]
     Active Substance: AFLIBERCEPT
     Dosage: UNK, TOTAL OF 22 DOSES
     Dates: start: 20141002, end: 20141002
  6. EYLEA [Suspect]
     Active Substance: AFLIBERCEPT
     Dosage: UNK, TOTAL OF 22 DOSES
     Dates: start: 20130926, end: 20130926
  7. EYLEA [Suspect]
     Active Substance: AFLIBERCEPT
     Dosage: UNK, TOTAL OF 22 DOSES
     Dates: start: 20150402, end: 20150402
  8. EYLEA [Suspect]
     Active Substance: AFLIBERCEPT
     Indication: NEOVASCULAR AGE-RELATED MACULAR DEGENERATION
     Dosage: UNK, TOTAL OF 22 DOSES
     Dates: start: 20121129, end: 20150402
  9. EYLEA [Suspect]
     Active Substance: AFLIBERCEPT
     Dosage: UNK, TOTAL OF 22 DOSES
     Dates: start: 20130221, end: 20130221
  10. EYLEA [Suspect]
     Active Substance: AFLIBERCEPT
     Dosage: UNK, TOTAL OF 22 DOSES
     Dates: start: 20140515, end: 20140515
  11. EYLEA [Suspect]
     Active Substance: AFLIBERCEPT
     Dosage: UNK, TOTAL OF 22 DOSES
     Dates: start: 20140807, end: 20140807
  12. EYLEA [Suspect]
     Active Substance: AFLIBERCEPT
     Dosage: UNK, TOTAL OF 22 DOSES
     Dates: start: 20140904, end: 20140904
  13. EYLEA [Suspect]
     Active Substance: AFLIBERCEPT
     Dosage: UNK, TOTAL OF 22 DOSES
     Dates: start: 20140410, end: 20140410
  14. EYLEA [Suspect]
     Active Substance: AFLIBERCEPT
     Dosage: UNK, TOTAL OF 22 DOSES
     Dates: start: 20141030, end: 20141030
  15. EYLEA [Suspect]
     Active Substance: AFLIBERCEPT
     Dosage: UNK, TOTAL OF 22 DOSES
     Dates: start: 20130822, end: 20130822
  16. EYLEA [Suspect]
     Active Substance: AFLIBERCEPT
     Dosage: UNK, TOTAL OF 22 DOSES
     Dates: start: 20140612, end: 20140612
  17. EYLEA [Suspect]
     Active Substance: AFLIBERCEPT
     Dosage: UNK, TOTAL OF 22 DOSES
     Dates: start: 20130124, end: 20130124
  18. EYLEA [Suspect]
     Active Substance: AFLIBERCEPT
     Dosage: UNK, TOTAL OF 22 DOSES
     Dates: start: 20130425, end: 20130425
  19. EYLEA [Suspect]
     Active Substance: AFLIBERCEPT
     Dosage: UNK, TOTAL OF 22 DOSES
     Dates: start: 20131205, end: 20131205
  20. EYLEA [Suspect]
     Active Substance: AFLIBERCEPT
     Dosage: UNK, TOTAL OF 22 DOSES
     Dates: start: 20140213, end: 20140213
  21. EYLEA [Suspect]
     Active Substance: AFLIBERCEPT
     Dosage: UNK, TOTAL OF 22 DOSES
     Dates: start: 20140313, end: 20140313
  22. EYLEA [Suspect]
     Active Substance: AFLIBERCEPT
     Dosage: UNK, TOTAL OF 22 DOSES
     Dates: start: 20140109, end: 20140109

REACTIONS (1)
  - Death [Fatal]
